FAERS Safety Report 25586228 (Version 1)
Quarter: 2025Q3

REPORT INFORMATION
  Report Type: Spontaneous
  Country: CN (occurrence: CN)
  Receive Date: 20250721
  Receipt Date: 20250721
  Transmission Date: 20251021
  Serious: Yes (Other)
  Sender: PFIZER
  Company Number: CN-PFIZER INC-PV202500085082

PATIENT
  Age: 66 Year
  Sex: Male
  Weight: 50 kg

DRUGS (5)
  1. LINEZOLID [Suspect]
     Active Substance: LINEZOLID
     Indication: Chronic obstructive pulmonary disease
     Dosage: 600 MG, 1X/DAY
     Route: 048
     Dates: start: 20250630, end: 20250702
  2. LINEZOLID [Suspect]
     Active Substance: LINEZOLID
     Indication: Lower respiratory tract infection
  3. LINEZOLID [Suspect]
     Active Substance: LINEZOLID
     Indication: Chronic obstructive pulmonary disease
     Dosage: 0.6 G, 1X/DAY
     Route: 041
     Dates: start: 20250630, end: 20250702
  4. LINEZOLID [Suspect]
     Active Substance: LINEZOLID
     Indication: Lower respiratory tract infection
  5. PIPERACILLIN SODIUM\TAZOBACTAM SODIUM [Concomitant]
     Active Substance: PIPERACILLIN SODIUM\TAZOBACTAM SODIUM
     Indication: Chronic obstructive pulmonary disease
     Dates: start: 20250624

REACTIONS (3)
  - Dyspnoea [Recovering/Resolving]
  - Chest discomfort [Recovering/Resolving]
  - Off label use [Unknown]

NARRATIVE: CASE EVENT DATE: 20250630
